FAERS Safety Report 12472186 (Version 1)
Quarter: 2016Q2

REPORT INFORMATION
  Report Type: Report from Study
  Country: US (occurrence: US)
  Receive Date: 20160616
  Receipt Date: 20160616
  Transmission Date: 20160815
  Serious: Yes (Hospitalization, Other)
  Sender: FDA-Public Use
  Company Number: US-ARIAD-2014US003777

PATIENT

DRUGS (3)
  1. ICLUSIG [Suspect]
     Active Substance: PONATINIB
     Dosage: 15 MG, QD
     Route: 048
     Dates: start: 20140619
  2. ICLUSIG [Suspect]
     Active Substance: PONATINIB
     Dosage: 30 MG, QD
     Route: 048
  3. ICLUSIG [Suspect]
     Active Substance: PONATINIB
     Indication: CHRONIC MYELOID LEUKAEMIA
     Dosage: 45 MG, QD
     Route: 048

REACTIONS (8)
  - Jaundice [Recovered/Resolved]
  - Fatigue [Unknown]
  - Musculoskeletal pain [Recovered/Resolved]
  - Hypoaesthesia [Unknown]
  - Lipase increased [Recovered/Resolved]
  - Asthenia [Unknown]
  - Hospitalisation [Unknown]
  - Hepatic enzyme increased [Recovered/Resolved]
